FAERS Safety Report 8355098 (Version 5)
Quarter: 2014Q1

REPORT INFORMATION
  Report Type: Spontaneous
  Country: IT (occurrence: IT)
  Receive Date: 20120126
  Receipt Date: 20140225
  Transmission Date: 20141002
  Serious: Yes (Other)
  Sender: FDA-Public Use
  Company Number: IT-BIOGENIDEC-2012BI002344

PATIENT
  Age: 33 Year
  Sex: Female

DRUGS (2)
  1. TYSABRI [Suspect]
     Indication: RELAPSING-REMITTING MULTIPLE SCLEROSIS
     Route: 042
     Dates: start: 20110505
  2. MILVANE [Concomitant]
     Indication: ORAL CONTRACEPTION
     Dates: start: 20100115, end: 20120116

REACTIONS (2)
  - Transverse sinus thrombosis [Unknown]
  - Sensorimotor disorder [Not Recovered/Not Resolved]
